FAERS Safety Report 5003896-8 (Version None)
Quarter: 2006Q2

REPORT INFORMATION
  Report Type: 
  Country: None (occurrence: None)
  Receive Date: 20060515
  Receipt Date: 20060503
  Transmission Date: 20061013
  Serious: Yes (Hospitalization)
  Sender: FDA-Public Use
  Company Number: MEDI-0004549

PATIENT
  Age: 3 Month
  Weight: 3.14 kg

DRUGS (4)
  1. SYNAGIS [Suspect]
     Indication: ANTIVIRAL PROPHYLAXIS
     Dosage: 47 + 50 + 60 + 75MG, 1 IN 1 30 D, INTRAMUSCULAR
     Route: 030
     Dates: start: 20051215, end: 20060112
  2. SYNAGIS [Suspect]
     Indication: ANTIVIRAL PROPHYLAXIS
     Dosage: 47 + 50 + 60 + 75MG, 1 IN 1 30 D, INTRAMUSCULAR
     Route: 030
     Dates: start: 20060309, end: 20060309
  3. SYNAGIS [Suspect]
     Indication: ANTIVIRAL PROPHYLAXIS
     Dosage: 47 + 50 + 60 + 75MG, 1 IN 1 30 D, INTRAMUSCULAR
     Route: 030
     Dates: start: 20051215
  4. SYNAGIS [Suspect]
     Indication: ANTIVIRAL PROPHYLAXIS
     Dosage: 47 + 50 + 60 + 75MG, 1 IN 1 30 D, INTRAMUSCULAR
     Route: 030
     Dates: start: 20060209

REACTIONS (2)
  - GASTROOESOPHAGEAL REFLUX DISEASE [None]
  - HAEMATOCHEZIA [None]
